FAERS Safety Report 6444275-6 (Version None)
Quarter: 2009Q4

REPORT INFORMATION
  Report Type: 
  Country: None (occurrence: None)
  Receive Date: 20091118
  Receipt Date: 20091109
  Transmission Date: 20100525
  Serious: Yes (Disabling, Other)
  Sender: FDA-Public Use
  Company Number: GB-ASTRAZENECA-2008SE01292

PATIENT
  Age: 77 Year
  Sex: Female
  Weight: 48 kg

DRUGS (10)
  1. CANDESARTAN CILEXETIL [Suspect]
     Route: 048
  2. TRACLEER [Suspect]
     Indication: PULMONARY HYPERTENSION
     Route: 048
     Dates: start: 20070804, end: 20070903
  3. TRACLEER [Suspect]
     Route: 048
     Dates: start: 20070904
  4. TRACLEER [Suspect]
     Route: 048
     Dates: start: 20070920
  5. FUROSEMIDE [Concomitant]
     Indication: OEDEMA
     Route: 065
     Dates: start: 20070926
  6. OMEPRAZOLE [Concomitant]
     Indication: GASTRITIS
     Route: 065
     Dates: start: 20041214
  7. PARACETAMOL [Concomitant]
     Indication: PAIN
     Route: 065
     Dates: start: 20070205
  8. PRAVASTATIN [Concomitant]
     Indication: HYPERCHOLESTEROLAEMIA
     Route: 065
     Dates: start: 20070926
  9. SPIRONOLACTONE [Concomitant]
     Indication: OEDEMA
     Route: 065
     Dates: start: 20070813
  10. TILDIEM RETARD [Concomitant]
     Indication: HYPERTENSION
     Route: 065
     Dates: start: 20051129

REACTIONS (2)
  - HYPOMANIA [None]
  - MANIA [None]
